FAERS Safety Report 18052495 (Version 3)
Quarter: 2020Q3

REPORT INFORMATION
  Report Type: Spontaneous
  Country: US (occurrence: US)
  Receive Date: 20200721
  Receipt Date: 20200924
  Transmission Date: 20201103
  Serious: Yes (Disabling, Other)
  Sender: FDA-Public Use
  Company Number: US-PURDUE-USA-2020-0158212

PATIENT
  Age: 32 Year
  Sex: Female

DRUGS (23)
  1. HYDROCODONE BITARTRATE AND ACETAMINOPHEN [Suspect]
     Active Substance: ACETAMINOPHEN\HYDROCODONE BITARTRATE
     Indication: MUSCLE STRAIN
     Dosage: UNKNOWN
     Route: 048
     Dates: start: 201103, end: 2013
  2. OXYCODONE HCL CR TABLETS (SIMILAR TO NDA 22?272) [Suspect]
     Active Substance: OXYCODONE HYDROCHLORIDE
     Indication: MUSCLE STRAIN
     Dosage: UNKNOWN
     Route: 048
     Dates: start: 201103, end: 2013
  3. XANAX [Suspect]
     Active Substance: ALPRAZOLAM
     Indication: PRODUCT USED FOR UNKNOWN INDICATION
     Dosage: UNKNOWN
     Route: 065
  4. SUBOXONE [Suspect]
     Active Substance: BUPRENORPHINE HYDROCHLORIDE\NALOXONE HYDROCHLORIDE
     Indication: DRUG DEPENDENCE
     Dosage: 8 MG, TID
     Route: 060
     Dates: start: 2013
  5. BUPRENORPHINE W/NALOXONE [Concomitant]
     Active Substance: BUPRENORPHINE HYDROCHLORIDE\NALOXONE HYDROCHLORIDE
     Indication: DRUG DEPENDENCE
     Dosage: 30 MG, DAILY
     Route: 060
  6. DILAUDID [Suspect]
     Active Substance: HYDROMORPHONE HYDROCHLORIDE
     Indication: MUSCLE STRAIN
     Dosage: UNKNOWN
     Route: 048
     Dates: start: 201103, end: 2013
  7. CITALOPRAM [Concomitant]
     Active Substance: CITALOPRAM HYDROBROMIDE
     Indication: PRODUCT USED FOR UNKNOWN INDICATION
     Dosage: 20 MG, DAILY
     Route: 048
  8. HYDROMORPHONE TABLETS [Suspect]
     Active Substance: HYDROMORPHONE
     Indication: BREAKTHROUGH PAIN
  9. TRAMADOL. [Suspect]
     Active Substance: TRAMADOL
     Indication: MUSCLE STRAIN
     Dosage: UNKNOWN
     Dates: start: 201103, end: 2013
  10. OMEPRAZOLE. [Concomitant]
     Active Substance: OMEPRAZOLE
     Indication: PRODUCT USED FOR UNKNOWN INDICATION
     Dosage: 40 MG, DAILY
     Route: 048
  11. HYDROMORPHONE HCL ORAL SOLUTION (RHODES) [Suspect]
     Active Substance: HYDROMORPHONE HYDROCHLORIDE
     Indication: MUSCLE STRAIN
     Dosage: UNKNOWN
     Route: 048
     Dates: start: 201103, end: 2013
  12. OXYCODONE/ ACETAMINOPHEN TABLETS [Suspect]
     Active Substance: ACETAMINOPHEN\OXYCODONE HYDROCHLORIDE
     Indication: MUSCLE STRAIN
     Dosage: UNKNOWN
     Route: 048
     Dates: start: 201103, end: 2013
  13. BUSPIRONE [Concomitant]
     Active Substance: BUSPIRONE HYDROCHLORIDE
     Indication: PRODUCT USED FOR UNKNOWN INDICATION
     Dosage: 15 MG, BID
     Route: 048
  14. OXYCODONE HCL TABLETS (RHODES 91?490) [Suspect]
     Active Substance: OXYCODONE HYDROCHLORIDE
     Indication: MUSCLE STRAIN
     Dosage: 60 MG, Q8H PRN
     Route: 048
     Dates: start: 201103, end: 2013
  15. OXYCODONE HCL TABLETS (RHODES 91?490) [Suspect]
     Active Substance: OXYCODONE HYDROCHLORIDE
     Indication: BREAKTHROUGH PAIN
  16. OXYCONTIN [Suspect]
     Active Substance: OXYCODONE HYDROCHLORIDE
     Indication: MUSCLE STRAIN
     Dosage: UNKNOWN
     Route: 048
     Dates: start: 201103, end: 2013
  17. HYDROMORPHONE TABLETS [Suspect]
     Active Substance: HYDROMORPHONE
     Indication: MUSCLE STRAIN
     Dosage: 4 MG, Q8H PRN
     Route: 048
     Dates: start: 201103, end: 2013
  18. MSIR [Suspect]
     Active Substance: MORPHINE SULFATE
     Indication: MUSCLE STRAIN
     Dosage: UNKNOWN
     Route: 065
     Dates: start: 201103, end: 2013
  19. OXYIR [Suspect]
     Active Substance: OXYCODONE HYDROCHLORIDE
     Indication: MUSCLE STRAIN
     Dosage: UNKNOWN
     Route: 065
     Dates: start: 201103, end: 2013
  20. MORPHINE SULFATE EXTENDED?RELEASE TABLETS (RHODES 74?769, 74?862) [Suspect]
     Active Substance: MORPHINE SULFATE
     Indication: PRODUCT USED FOR UNKNOWN INDICATION
     Dosage: UNK
     Route: 048
  21. MS CONTIN [Suspect]
     Active Substance: MORPHINE SULFATE
     Indication: MUSCLE STRAIN
     Dosage: UNKNOWN
     Route: 048
     Dates: start: 201103, end: 2013
  22. BUPRENORPHINE TRANSDERMAL PATCH (SIMILAR TO NDA 21?306) [Suspect]
     Active Substance: BUPRENORPHINE
     Indication: MUSCLE STRAIN
     Dosage: UNKNOWN
     Route: 062
     Dates: start: 201103, end: 2013
  23. NALTREXONE [Concomitant]
     Active Substance: NALTREXONE
     Indication: PRODUCT USED FOR UNKNOWN INDICATION
     Dosage: 50 MG, DAILY
     Route: 048

REACTIONS (11)
  - Hepatitis C [Unknown]
  - Emotional distress [Unknown]
  - Maternal exposure during pregnancy [Unknown]
  - Drug abuse [Unknown]
  - Tooth loss [Unknown]
  - Rehabilitation therapy [Recovered/Resolved]
  - Abortion spontaneous [Unknown]
  - Depression [Not Recovered/Not Resolved]
  - Anxiety [Not Recovered/Not Resolved]
  - Overdose [Unknown]
  - Drug dependence [Recovering/Resolving]

NARRATIVE: CASE EVENT DATE: 2009
